FAERS Safety Report 5632931-9 (Version None)
Quarter: 2008Q1

REPORT INFORMATION
  Report Type: 
  Country: None (occurrence: None)
  Receive Date: 20080213
  Receipt Date: 20080205
  Transmission Date: 20080703
  Serious: Yes (Other)
  Sender: FDA-Public Use
  Company Number: CHNY2008SE00793

PATIENT
  Age: 41 Year

DRUGS (1)
  1. NICOTINE [Suspect]
     Indication: SMOKING CESSATION THERAPY
     Dosage: CHEWED;2 MG,DIVIDED IN HALVES;CHEWED
     Dates: start: 20020201

REACTIONS (2)
  - DRUG DEPENDENCE [None]
  - WRONG TECHNIQUE IN DRUG USAGE PROCESS [None]
